FAERS Safety Report 15005880 (Version 1)
Quarter: 2018Q2

REPORT INFORMATION
  Report Type: Spontaneous
  Country: US (occurrence: US)
  Receive Date: 20180525
  Receipt Date: 20180525
  Transmission Date: 20180711
  Serious: No
  Sender: FDA-Public Use
  Company Number: None

PATIENT
  Age: 10 Year
  Sex: Male
  Weight: 32.4 kg

DRUGS (6)
  1. MULTI-VITAMIN [Concomitant]
     Active Substance: .ALPHA.-TOCOPHEROL ACETATE, DL-\ASCORBIC ACID\CYANOCOBALAMIN\FLUORIDE ION\FOLIC ACID\NIACIN\PYRIDOXINE\RIBOFLAVIN\THIAMINE\VITAMIN A\VITAMIN D
  2. PROBIOTICS [Concomitant]
     Active Substance: PROBIOTICS NOS
  3. CLONIDINE. [Concomitant]
     Active Substance: CLONIDINE
  4. IRON SUPPLEMENT [Concomitant]
     Active Substance: IRON
  5. METHYLPHENIDATE ER [Concomitant]
     Active Substance: METHYLPHENIDATE
  6. METHYLPHENIDATE HYDROCHLORIDE EXTENDED-RELEASE [Suspect]
     Active Substance: METHYLPHENIDATE HYDROCHLORIDE
     Indication: ATTENTION DEFICIT/HYPERACTIVITY DISORDER
     Dosage: ?          QUANTITY:1 TABLET(S);?
     Route: 048
     Dates: start: 20171228

REACTIONS (4)
  - Device issue [None]
  - Product substitution issue [None]
  - Therapeutic response changed [None]
  - Drug ineffective [None]
